FAERS Safety Report 15857483 (Version 1)
Quarter: 2019Q1

REPORT INFORMATION
  Report Type: Other
  Country: GB (occurrence: GB)
  Receive Date: 20190123
  Receipt Date: 20190123
  Transmission Date: 20190417
  Serious: Yes (Death)
  Sender: FDA-Public Use
  Company Number: GB-APPCO PHARMA LLC-2061609

PATIENT
  Sex: Male

DRUGS (7)
  1. DIAZEPAM. [Suspect]
     Active Substance: DIAZEPAM
     Route: 065
  2. OXAZEPAM. [Suspect]
     Active Substance: OXAZEPAM
     Route: 065
  3. TEMAZEPAM. [Suspect]
     Active Substance: TEMAZEPAM
     Route: 065
  4. ALCOHOL. [Suspect]
     Active Substance: ALCOHOL
     Route: 065
  5. GAMMAHYDROXYBUTRATE [Suspect]
     Active Substance: 4-HYDROXYBUTANOIC ACID
     Route: 065
  6. MEPHEDRONE [Suspect]
     Active Substance: MEPHEDRONE
     Route: 065
  7. FLUOXETINE [Suspect]
     Active Substance: FLUOXETINE HYDROCHLORIDE
     Indication: PRODUCT USED FOR UNKNOWN INDICATION
     Route: 065

REACTIONS (2)
  - Accidental poisoning [Fatal]
  - Poisoning [Fatal]
